FAERS Safety Report 4861281-3 (Version None)
Quarter: 2005Q4

REPORT INFORMATION
  Report Type: 
  Country: None (occurrence: None)
  Receive Date: 20051220
  Receipt Date: 20051005
  Transmission Date: 20060501
  Serious: Yes (Hospitalization, Disabling)
  Sender: FDA-Public Use
  Company Number: US-MERCK-0510USA05309

PATIENT
  Age: 44 Year
  Sex: Female
  Weight: 68 kg

DRUGS (5)
  1. VIOXX [Suspect]
     Indication: OSTEOARTHRITIS
     Route: 048
     Dates: start: 20000101, end: 20040101
  2. SYNTHROID [Concomitant]
     Route: 065
  3. DILAUDID [Concomitant]
     Route: 065
  4. VITAMIN D (UNSPECIFIED) [Concomitant]
     Route: 065
  5. CALCIUM (UNSPECIFIED) [Concomitant]
     Route: 065

REACTIONS (6)
  - ADVERSE EVENT [None]
  - CARDIOVASCULAR DISORDER [None]
  - CARPAL TUNNEL SYNDROME [None]
  - DEPRESSION [None]
  - EMPHYSEMA [None]
  - RENAL FAILURE [None]
